FAERS Safety Report 8830009 (Version 1)
Quarter: 2012Q4

REPORT INFORMATION
  Report Type: 
  Country: MX (occurrence: MX)
  Receive Date: 20121008
  Receipt Date: 20121008
  Transmission Date: 20130627
  Serious: Yes (Death)
  Sender: FDA-Public Use
  Company Number: PHHY2012MX087706

PATIENT
  Sex: Male

DRUGS (8)
  1. RASILEZ [Suspect]
     Indication: HYPERTENSION
     Dosage: 1 DF (300 mg), per day
  2. NIFEDIPINE [Concomitant]
  3. URSOFALK [Concomitant]
  4. MICARDIS [Concomitant]
  5. PRASOFINA [Concomitant]
  6. ELANTAN [Concomitant]
  7. INSULIN [Concomitant]
  8. ERYTHROPOIETIN [Concomitant]

REACTIONS (1)
  - Death [Fatal]
